FAERS Safety Report 9665600 (Version 1)
Quarter: 2013Q4

REPORT INFORMATION
  Report Type: Spontaneous
  Country: US (occurrence: None)
  Receive Date: 20131031
  Receipt Date: 20131031
  Transmission Date: 20140711
  Serious: No
  Sender: FDA-Public Use
  Company Number: None

PATIENT
  Age: 63 Year
  Sex: Male
  Weight: 133.6 kg

DRUGS (1)
  1. IOHEXOL [Suspect]
     Indication: COMPUTERISED TOMOGRAM
     Route: 042
     Dates: start: 20131029, end: 20131029

REACTIONS (7)
  - Urticaria [None]
  - Swelling [None]
  - Erythema [None]
  - Angioedema [None]
  - Rash [None]
  - Urticaria [None]
  - Pruritus [None]
